FAERS Safety Report 5423954-3 (Version None)
Quarter: 2007Q3

REPORT INFORMATION
  Report Type: 
  Country: None (occurrence: None)
  Receive Date: 20070823
  Receipt Date: 20070810
  Transmission Date: 20080115
  Serious: Yes (Hospitalization, Other)
  Sender: FDA-Public Use
  Company Number: NO-ELI_LILLY_AND_COMPANY-US_010566221

PATIENT
  Age: 1 Day
  Weight: 0.87 kg

DRUGS (1)
  1. FLUOXETINE HYDROCHLORIDE [Suspect]
     Dosage: UNK, UNKNOWN
     Route: 064

REACTIONS (2)
  - DRUG WITHDRAWAL SYNDROME NEONATAL [None]
  - PREMATURE BABY [None]
